FAERS Safety Report 9460706 (Version 2)
Quarter: 2013Q3

REPORT INFORMATION
  Report Type: Spontaneous
  Country: GB (occurrence: None)
  Receive Date: 20130813
  Receipt Date: 20130813
  Transmission Date: 20140515
  Serious: Yes (Death)
  Sender: FDA-Public Use
  Company Number: FK201303167

PATIENT
  Sex: Female

DRUGS (2)
  1. PACLITAXEL (PACLITAXEL) [Suspect]
     Indication: PRODUCT USED FOR UNKNOWN INDICATION
  2. AVASTIN (BEVACIZUMAB) [Suspect]
     Indication: PRODUCT USED FOR UNKNOWN INDICATION

REACTIONS (1)
  - Death [None]
